FAERS Safety Report 7026930-2 (Version None)
Quarter: 2010Q4

REPORT INFORMATION
  Report Type: 
  Country: None (occurrence: None)
  Receive Date: 20101004
  Receipt Date: 20100924
  Transmission Date: 20110411
  Serious: Yes (Other)
  Sender: FDA-Public Use
  Company Number: B0675806A

PATIENT
  Sex: Female
  Weight: 82 kg

DRUGS (4)
  1. MALARONE [Suspect]
     Indication: MALARIA PROPHYLAXIS
     Dosage: 1TAB PER DAY
     Route: 048
     Dates: start: 20100715, end: 20100901
  2. LAMICTAL [Concomitant]
     Indication: EPILEPSY
     Dosage: 200MG PER DAY
     Route: 048
     Dates: start: 20090401
  3. AMLODIPINE [Concomitant]
     Indication: HYPERTENSION
     Dosage: 5MG PER DAY
     Route: 048
     Dates: start: 20090707
  4. PAROXETINE HCL [Concomitant]
     Dosage: 10MG PER DAY
     Route: 048
     Dates: start: 20090707

REACTIONS (3)
  - EPILEPSY [None]
  - NERVOUS SYSTEM DISORDER [None]
  - PARAESTHESIA [None]
